FAERS Safety Report 13922950 (Version 1)
Quarter: 2017Q3

REPORT INFORMATION
  Report Type: Spontaneous
  Country: US (occurrence: US)
  Receive Date: 20170830
  Receipt Date: 20170830
  Transmission Date: 20171127
  Serious: Yes (Life-Threatening, Other)
  Sender: FDA-Public Use
  Company Number: US-MYLANLABS-2017M1053780

PATIENT
  Age: 30 Year
  Sex: Female
  Weight: 73.2 kg

DRUGS (7)
  1. LIDOCAINE. [Suspect]
     Active Substance: LIDOCAINE
     Indication: LABOUR PAIN
     Dosage: 1%; 0.1ML; PRESERVATIVE FREE
     Route: 058
  2. LIDOCAINE. [Suspect]
     Active Substance: LIDOCAINE
     Indication: ALLERGY TEST
     Dosage: WITH 1:200000 EPINEPHRINE
     Route: 008
  3. CHLOROPROCAINE [Suspect]
     Active Substance: CHLOROPROCAINE
     Dosage: 3% OF 15ML
     Route: 008
  4. BUPIVACAINE. [Concomitant]
     Active Substance: BUPIVACAINE
     Indication: LABOUR PAIN
     Dosage: 0.0625%
     Route: 008
  5. CHLOROPROCAINE [Suspect]
     Active Substance: CHLOROPROCAINE
     Indication: LABOUR PAIN
     Dosage: 1%; 0.1ML
     Route: 058
  6. FENTANYL. [Concomitant]
     Active Substance: FENTANYL
     Indication: LABOUR PAIN
     Dosage: 2 MICROG/ML
     Route: 008
  7. EPINEPHRINE. [Concomitant]
     Active Substance: EPINEPHRINE
     Indication: LABOUR PAIN
     Dosage: 1:200000
     Route: 008

REACTIONS (3)
  - Laryngeal oedema [Recovered/Resolved]
  - Maternal exposure during delivery [Recovered/Resolved]
  - Anaphylactic reaction [Recovered/Resolved]
